FAERS Safety Report 6337836-6 (Version None)
Quarter: 2009Q3

REPORT INFORMATION
  Report Type: 
  Country: None (occurrence: None)
  Receive Date: 20090902
  Receipt Date: 20090831
  Transmission Date: 20100115
  Serious: Yes (Other)
  Sender: FDA-Public Use
  Company Number: A0805228A

PATIENT
  Age: 16 Year
  Sex: Male
  Weight: 81.8 kg

DRUGS (1)
  1. PAXIL [Suspect]
     Indication: DRUG USE FOR UNKNOWN INDICATION
     Dosage: 20MG PER DAY
     Route: 048

REACTIONS (4)
  - DYSLIPIDAEMIA [None]
  - HYPOTHYROIDISM [None]
  - LIVER DISORDER [None]
  - RENAL DISORDER [None]
